FAERS Safety Report 4893587-6 (Version None)
Quarter: 2006Q1

REPORT INFORMATION
  Report Type: 
  Country: None (occurrence: None)
  Receive Date: 20060127
  Receipt Date: 20060123
  Transmission Date: 20060701
  Serious: Yes (Other)
  Sender: FDA-Public Use
  Company Number: PHBS2006ES01241

PATIENT
  Age: 82 Year
  Sex: Female

DRUGS (4)
  1. DIOVAN [Suspect]
     Dosage: 80 MG, UNK
     Dates: start: 20050528, end: 20050920
  2. PECTOX LISINA [Suspect]
     Indication: NASOPHARYNGITIS
     Dosage: 2700 MG, UNK
     Dates: start: 20050901, end: 20050920
  3. HOMEOPATHIC PREPARATIONS [Suspect]
     Indication: PAIN
     Dates: start: 20050901, end: 20050908
  4. IDAPTAN [Concomitant]
     Dosage: 20 MG, UNK

REACTIONS (4)
  - GENITAL DISORDER FEMALE [None]
  - HEPATITIS CHOLESTATIC [None]
  - NASOPHARYNGITIS [None]
  - PAIN [None]
